FAERS Safety Report 6098937-3 (Version None)
Quarter: 2009Q1

REPORT INFORMATION
  Report Type: 
  Country: None (occurrence: None)
  Receive Date: 20090302
  Receipt Date: 20090223
  Transmission Date: 20090719
  Serious: Yes (Hospitalization)
  Sender: FDA-Public Use
  Company Number: FR-MERCK-0902FRA00073

PATIENT
  Age: 41 Year
  Sex: Male

DRUGS (6)
  1. NOROXIN [Suspect]
     Indication: URINARY TRACT INFECTION
     Route: 048
     Dates: start: 20080601, end: 20080701
  2. TETRAZEPAM [Concomitant]
     Indication: MUSCLE CONTRACTURE
     Route: 048
  3. TRIMEBUTINE MALEATE [Concomitant]
     Indication: ABDOMINAL PAIN UPPER
     Route: 048
  4. GABAPENTIN [Concomitant]
     Indication: NEURALGIA
     Route: 048
  5. AMITRIPTYLINE HYDROCHLORIDE [Concomitant]
     Indication: DEPRESSION
     Route: 048
  6. OXYBUTYNIN CHLORIDE [Concomitant]
     Indication: URINARY INCONTINENCE
     Route: 048

REACTIONS (1)
  - CLOSTRIDIUM DIFFICILE COLITIS [None]
